FAERS Safety Report 7444301-1 (Version None)
Quarter: 2011Q2

REPORT INFORMATION
  Report Type: 
  Country: None (occurrence: None)
  Receive Date: 20110429
  Receipt Date: 20110420
  Transmission Date: 20111010
  Serious: Yes (Hospitalization)
  Sender: FDA-Public Use
  Company Number: FR-JNJFOC-20110410568

PATIENT
  Sex: Male

DRUGS (6)
  1. NORVIR [Interacting]
     Indication: HIV INFECTION
     Route: 048
     Dates: start: 20101218, end: 20110303
  2. TRUVADA [Concomitant]
     Indication: PRODUCT USED FOR UNKNOWN INDICATION
     Route: 048
  3. EFFEXOR [Interacting]
     Indication: PRODUCT USED FOR UNKNOWN INDICATION
     Route: 048
  4. IMODIUM [Suspect]
     Indication: DIARRHOEA
     Route: 048
     Dates: start: 20110225, end: 20110303
  5. REYATAZ [Interacting]
     Indication: HIV INFECTION
     Route: 048
     Dates: start: 20101218, end: 20110303
  6. ACETAMINOPHEN [Suspect]
     Indication: PRODUCT USED FOR UNKNOWN INDICATION
     Route: 048

REACTIONS (7)
  - CHILLS [None]
  - ABDOMINAL PAIN [None]
  - DIARRHOEA [None]
  - HYPERBILIRUBINAEMIA [None]
  - DRUG INTERACTION [None]
  - CONDITION AGGRAVATED [None]
  - VOMITING [None]
